FAERS Safety Report 5795009-X (Version None)
Quarter: 2008Q2

REPORT INFORMATION
  Report Type: 
  Country: None (occurrence: None)
  Receive Date: 20080630
  Receipt Date: 20080522
  Transmission Date: 20081010
  Serious: No
  Sender: FDA-Public Use
  Company Number: US-BRISTOL-MYERS SQUIBB COMPANY-14087779

PATIENT
  Age: 61 Year
  Sex: Female
  Weight: 57 kg

DRUGS (18)
  1. ORENCIA [Suspect]
     Indication: RHEUMATOID ARTHRITIS
     Dosage: DATES - 30-NOV-2007 FIFTH + LAST TREATMENT - 08-FEB-2008. 1-HR INFUSION.
     Route: 042
     Dates: start: 20071116
  2. BENADRYL [Concomitant]
     Indication: PREMEDICATION
  3. PREDNISONE [Concomitant]
     Dosage: RESTARTED ON 21-FEB-2008 DUE TO SEVERITY OF THE SYMPTOMS.
     Dates: end: 20071109
  4. ADVIL [Concomitant]
  5. VALIUM [Concomitant]
  6. CALCIUM [Concomitant]
  7. MAGNESIUM [Concomitant]
  8. ACIDOPHILUS [Concomitant]
  9. VITAMIN B COMPLEX CAP [Concomitant]
  10. FOLIC ACID [Concomitant]
  11. OMEGA 3 FISH OIL [Concomitant]
  12. VITAMIN E [Concomitant]
  13. ASCORBIC ACID [Concomitant]
  14. GINKGO BILOBA [Concomitant]
  15. GRAPESEED EXTRACT [Concomitant]
  16. BROMELAIN [Concomitant]
  17. ALOE VERA [Concomitant]
  18. CORTISONE [Concomitant]
     Dosage: CORTISONE INJ
     Dates: start: 20071109

REACTIONS (18)
  - ASTHENIA [None]
  - BACK PAIN [None]
  - BREATH ODOUR [None]
  - CHEST DISCOMFORT [None]
  - DRUG INEFFECTIVE [None]
  - DYSSTASIA [None]
  - FATIGUE [None]
  - GAIT DISTURBANCE [None]
  - HEADACHE [None]
  - MUSCULOSKELETAL CHEST PAIN [None]
  - NASAL CONGESTION [None]
  - NAUSEA [None]
  - ORAL PAIN [None]
  - PAIN [None]
  - RASH [None]
  - SENSITIVITY OF TEETH [None]
  - TREMOR [None]
  - URINE ODOUR ABNORMAL [None]
